FAERS Safety Report 16939250 (Version 2)
Quarter: 2019Q4

REPORT INFORMATION
  Report Type: Spontaneous
  Country: US (occurrence: US)
  Receive Date: 20191021
  Receipt Date: 20191031
  Transmission Date: 20200122
  Serious: No
  Sender: FDA-Public Use
  Company Number: US-AMGEN-USASP2019171865

PATIENT
  Age: 75 Year
  Sex: Female
  Weight: 68.48 kg

DRUGS (2)
  1. RETACRIT [EPOETIN ALFA EPBX] [Concomitant]
     Indication: MYELODYSPLASTIC SYNDROME
     Dosage: 40000 UNIT
     Dates: start: 20191001
  2. PROCRIT [Suspect]
     Active Substance: ERYTHROPOIETIN
     Indication: MYELODYSPLASTIC SYNDROME
     Dosage: 40000 UNIT
     Route: 058
     Dates: start: 20191008

REACTIONS (2)
  - Wrong product administered [Unknown]
  - Product use in unapproved indication [Unknown]

NARRATIVE: CASE EVENT DATE: 20191008
